FAERS Safety Report 23897343 (Version 1)
Quarter: 2024Q2

REPORT INFORMATION
  Report Type: Spontaneous
  Country: US (occurrence: US)
  Receive Date: 20240524
  Receipt Date: 20240524
  Transmission Date: 20240716
  Serious: Yes (Hospitalization)
  Sender: FDA-Public Use
  Company Number: US-Calliditas-2024CAL00818

PATIENT
  Age: 52 Year
  Sex: Female

DRUGS (1)
  1. TARPEYO [Suspect]
     Active Substance: BUDESONIDE
     Indication: IgA nephropathy
     Route: 048
     Dates: start: 20231201

REACTIONS (7)
  - Hypertension [Unknown]
  - Fluid retention [Unknown]
  - Thrombosis [Unknown]
  - Weight increased [Unknown]
  - Product dose omission issue [Unknown]
  - Pulmonary embolism [Unknown]
  - Pollakiuria [Unknown]
